FAERS Safety Report 11519150 (Version 2)
Quarter: 2015Q4

REPORT INFORMATION
  Report Type: Report from Study
  Country: GB (occurrence: GB)
  Receive Date: 20150917
  Receipt Date: 20151226
  Transmission Date: 20160304
  Serious: Yes (Hospitalization)
  Sender: FDA-Public Use
  Company Number: PHHY2015GB112204

PATIENT
  Sex: Male

DRUGS (1)
  1. GILENYA [Suspect]
     Active Substance: FINGOLIMOD HYDROCHLORIDE
     Indication: PRODUCT USED FOR UNKNOWN INDICATION
     Dosage: 0.5 MG, UNK
     Route: 048

REACTIONS (2)
  - Multiple sclerosis relapse [Unknown]
  - Muscular weakness [Unknown]
